FAERS Safety Report 23466771 (Version 1)
Quarter: 2024Q1

REPORT INFORMATION
  Report Type: Spontaneous
  Country: IE (occurrence: IE)
  Receive Date: 20240201
  Receipt Date: 20240201
  Transmission Date: 20240410
  Serious: Yes (Hospitalization)
  Sender: FDA-Public Use
  Company Number: IE-ABBVIE-5589460

PATIENT
  Age: 49 Year
  Sex: Female

DRUGS (2)
  1. BOTOX COSMETIC [Suspect]
     Active Substance: ONABOTULINUMTOXINA
     Indication: Product used for unknown indication
     Dosage: TIME INTERVAL: AS NECESSARY
     Route: 065
     Dates: start: 20231222, end: 20231222
  2. PANTOPRAZOLE [Concomitant]
     Active Substance: PANTOPRAZOLE
     Indication: Product used for unknown indication

REACTIONS (13)
  - Systemic infection [Not Recovered/Not Resolved]
  - Facial pain [Not Recovered/Not Resolved]
  - Mass [Recovered/Resolved]
  - Swelling face [Not Recovered/Not Resolved]
  - Hypoaesthesia [Unknown]
  - Infection [Recovering/Resolving]
  - Mass [Not Recovered/Not Resolved]
  - Periorbital swelling [Recovering/Resolving]
  - Facial pain [Not Recovered/Not Resolved]
  - Swelling face [Not Recovered/Not Resolved]
  - Facial pain [Unknown]
  - Nodule [Unknown]
  - Inflammation [Unknown]

NARRATIVE: CASE EVENT DATE: 20231201
